FAERS Safety Report 20121222 (Version 2)
Quarter: 2021Q4

REPORT INFORMATION
  Report Type: Spontaneous
  Country: US (occurrence: US)
  Receive Date: 20211127
  Receipt Date: 20211208
  Transmission Date: 20220303
  Serious: No
  Sender: FDA-Public Use
  Company Number: US-JNJFOC-20211157402

PATIENT
  Age: 62 Year
  Sex: Female

DRUGS (2)
  1. JANSSEN COVID-19 VACCINE [Suspect]
     Active Substance: AD26.COV2.S
     Indication: Immunisation
     Route: 065
     Dates: start: 20211119, end: 20211119
  2. OPSUMIT [Suspect]
     Active Substance: MACITENTAN
     Indication: Product used for unknown indication
     Route: 065
     Dates: start: 2019

REACTIONS (2)
  - Rash [Recovered/Resolved]
  - Fatigue [Recovered/Resolved]

NARRATIVE: CASE EVENT DATE: 20211120
